FAERS Safety Report 6812270-0 (Version None)
Quarter: 2010Q3

REPORT INFORMATION
  Report Type: 
  Country: None (occurrence: None)
  Receive Date: 20100701
  Receipt Date: 20100617
  Transmission Date: 20110219
  Serious: Yes (Other)
  Sender: FDA-Public Use
  Company Number: PHEH2009US14977

PATIENT
  Sex: Male
  Weight: 49 kg

DRUGS (20)
  1. EXJADE [Suspect]
     Indication: MYELODYSPLASTIC SYNDROME
     Dosage: 625 MG, QD
     Route: 048
     Dates: start: 20090701
  2. EXJADE [Suspect]
     Indication: IRON OVERLOAD
     Dosage: 1000 MG, QD
     Route: 048
     Dates: start: 20090924
  3. EXJADE [Suspect]
     Indication: SERUM FERRITIN INCREASED
     Dosage: 875 MG/DAY
     Route: 048
     Dates: start: 20091016
  4. EXJADE [Suspect]
     Dosage: 1000 MG, QD
     Dates: start: 20091020, end: 20091024
  5. EXJADE [Suspect]
     Dosage: 1000 MG, QD
     Dates: start: 20091025, end: 20091123
  6. EXJADE [Suspect]
     Dosage: 1000 MG, QD
     Route: 048
     Dates: start: 20100423, end: 20100520
  7. SANDIMMUNE [Suspect]
  8. METOPROLOL TARTRATE [Suspect]
     Indication: BLOOD PRESSURE
     Dosage: 125 UNK, BID
     Route: 048
  9. IMMUNE GLOBULIN (HUMAN) [Suspect]
  10. CENTRUM SILVER [Concomitant]
  11. MONOPRIL [Concomitant]
  12. NEXIUM [Concomitant]
  13. ARANESP [Concomitant]
  14. TOPROL-XL [Concomitant]
     Dosage: 12.5 G, QD
     Route: 048
  15. NEUPOGEN [Concomitant]
     Dosage: 300 UG, UNK
  16. PROCRIT [Concomitant]
     Dosage: 40000 U, UNK
  17. ACIPHEX [Concomitant]
     Indication: GASTROOESOPHAGEAL REFLUX DISEASE
     Dosage: 20 MG, QD
     Route: 048
  18. SENOKOT [Concomitant]
     Dosage: UNK
  19. ZOVIRAX [Concomitant]
     Indication: HERPES VIRUS INFECTION
     Dosage: 400 MG, BID
     Route: 048
  20. CYCLOSPORINE [Concomitant]
     Dosage: UNK
     Route: 048

REACTIONS (20)
  - ARTHRALGIA [None]
  - DIARRHOEA [None]
  - DRUG TOXICITY [None]
  - EYE DISCHARGE [None]
  - GLOSSODYNIA [None]
  - HEADACHE [None]
  - JOINT SWELLING [None]
  - OCULAR HYPERAEMIA [None]
  - OROPHARYNGEAL PAIN [None]
  - PHOTOPSIA [None]
  - RASH [None]
  - RHEUMATOID ARTHRITIS [None]
  - SKIN IRRITATION [None]
  - SKIN LESION [None]
  - SKIN ULCER [None]
  - TONGUE ULCERATION [None]
  - VISUAL IMPAIRMENT [None]
  - VITREOUS DETACHMENT [None]
  - VITREOUS FLOATERS [None]
  - VOMITING [None]
